FAERS Safety Report 19774505 (Version 1)
Quarter: 2021Q3

REPORT INFORMATION
  Report Type: Spontaneous
  Country: US (occurrence: US)
  Receive Date: 20210827
  Receipt Date: 20210827
  Transmission Date: 20211014
  Serious: No
  Sender: FDA-Public Use
  Company Number: US-009507513-2108USA007226

PATIENT
  Sex: Female

DRUGS (2)
  1. KEYTRUDA [Suspect]
     Active Substance: PEMBROLIZUMAB
     Dosage: UNK
  2. LENVATINIB MESYLATE [Suspect]
     Active Substance: LENVATINIB MESYLATE
     Indication: ENDOMETRIAL CANCER
     Dosage: DAILY DOSE:14 MG
     Route: 048
     Dates: start: 20210709

REACTIONS (3)
  - Blood pressure abnormal [Unknown]
  - Blood thyroid stimulating hormone increased [Unknown]
  - Tachycardia [Unknown]

NARRATIVE: CASE EVENT DATE: 202108
